FAERS Safety Report 4734175-1 (Version None)
Quarter: 2005Q3

REPORT INFORMATION
  Report Type: 
  Country: None (occurrence: None)
  Receive Date: 20050729
  Receipt Date: 20050718
  Transmission Date: 20060218
  Serious: Yes (Other)
  Sender: FDA-Public Use
  Company Number: 23061

PATIENT
  Sex: 0

DRUGS (1)
  1. NIASPAN [Suspect]

REACTIONS (1)
  - RHABDOMYOLYSIS [None]
